FAERS Safety Report 12856424 (Version 1)
Quarter: 2016Q4

REPORT INFORMATION
  Report Type: Spontaneous
  Country: US (occurrence: US)
  Receive Date: 20161017
  Receipt Date: 20161017
  Transmission Date: 20170207
  Serious: Yes (Death)
  Sender: FDA-Public Use
  Company Number: None

PATIENT
  Age: 86 Year
  Sex: Male

DRUGS (1)
  1. REVLIMID [Suspect]
     Active Substance: LENALIDOMIDE
     Indication: PLASMA CELL MYELOMA
     Dosage: 25MG DAILY X21D/28D ORAL 2 CYCLES
     Route: 048

REACTIONS (2)
  - Gastrointestinal disorder [None]
  - Perforation [None]

NARRATIVE: CASE EVENT DATE: 20140718
